FAERS Safety Report 4958619-5 (Version None)
Quarter: 2006Q1

REPORT INFORMATION
  Report Type: 
  Country: None (occurrence: None)
  Receive Date: 20060127
  Receipt Date: 20050104
  Transmission Date: 20060701
  Serious: Yes (Death)
  Sender: FDA-Public Use
  Company Number: 05-01-0036

PATIENT
  Age: 50 Year
  Sex: Male

DRUGS (2)
  1. CLOZAPINE [Suspect]
     Indication: SCHIZOPHRENIA, UNDIFFERENTIATED TYPE
     Dosage: 300MG HS, ORAL
     Route: 048
     Dates: start: 20040801, end: 20041201
  2. ABILIFY [Concomitant]

REACTIONS (2)
  - PLATELET COUNT DECREASED [None]
  - UNEVALUABLE EVENT [None]
